FAERS Safety Report 9254051 (Version 1)
Quarter: 2013Q2

REPORT INFORMATION
  Report Type: Spontaneous
  Country: US (occurrence: None)
  Receive Date: 20130424
  Receipt Date: 20130424
  Transmission Date: 20140414
  Serious: Yes (Hospitalization)
  Sender: FDA-Public Use
  Company Number: None

PATIENT
  Age: 61 Year
  Sex: Male

DRUGS (1)
  1. WARFARIN [Suspect]
     Indication: DEEP VEIN THROMBOSIS
     Dosage: 5 MG  AT BEDTIME  PO
     Route: 048
     Dates: start: 20130325, end: 20130329

REACTIONS (3)
  - Haemorrhage [None]
  - Haematoma [None]
  - International normalised ratio abnormal [None]
